FAERS Safety Report 6052833-6 (Version None)
Quarter: 2009Q1

REPORT INFORMATION
  Report Type: 
  Country: None (occurrence: None)
  Receive Date: 20090127
  Receipt Date: 20090115
  Transmission Date: 20090719
  Serious: Yes (Hospitalization)
  Sender: FDA-Public Use
  Company Number: JP-PFIZER INC-2008087012

PATIENT

DRUGS (3)
  1. NORVASC [Suspect]
     Route: 048
     Dates: start: 20030101
  2. ALLOPURINOL [Suspect]
     Indication: GOUT
     Route: 048
     Dates: start: 20010101
  3. POTASSIUM CITRATE/SODIUM CITRATE [Suspect]

REACTIONS (1)
  - PANCYTOPENIA [None]
